FAERS Safety Report 10080975 (Version 2)
Quarter: 2014Q4

REPORT INFORMATION
  Report Type: Spontaneous
  Country: US (occurrence: US)
  Receive Date: 20140416
  Receipt Date: 20141125
  Transmission Date: 20150528
  Serious: Yes (Other)
  Sender: FDA-Public Use
  Company Number: US-BAYER-2014-054879

PATIENT
  Age: 24 Year
  Sex: Female
  Weight: 55.78 kg

DRUGS (3)
  1. YAZ [Suspect]
     Active Substance: DROSPIRENONE\ETHINYL ESTRADIOL
     Indication: PREMENSTRUAL SYNDROME
  2. YAZ [Suspect]
     Active Substance: DROSPIRENONE\ETHINYL ESTRADIOL
     Indication: ACNE
     Dosage: UNK
     Dates: start: 200401, end: 200403
  3. YAZ [Suspect]
     Active Substance: DROSPIRENONE\ETHINYL ESTRADIOL
     Indication: PREMENSTRUAL DYSPHORIC DISORDER

REACTIONS (9)
  - Pulmonary embolism [None]
  - Thrombosis [None]
  - Deep vein thrombosis [None]
  - Genital haemorrhage [None]
  - Emotional distress [None]
  - Pain [None]
  - Injury [None]
  - Mobility decreased [None]
  - Cerebrovascular accident [None]

NARRATIVE: CASE EVENT DATE: 2004
